FAERS Safety Report 11076123 (Version 2)
Quarter: 2015Q3

REPORT INFORMATION
  Report Type: Spontaneous
  Country: US (occurrence: US)
  Receive Date: 20150429
  Receipt Date: 20150723
  Transmission Date: 20151125
  Serious: Yes (Hospitalization)
  Sender: FDA-Public Use
  Company Number: US-PFIZER INC-2015140966

PATIENT
  Age: 57 Year
  Sex: Male
  Weight: 111 kg

DRUGS (18)
  1. LYRICA [Suspect]
     Active Substance: PREGABALIN
     Indication: LIMB DISCOMFORT
     Dosage: 75 MG, 3X/DAY (ONE IN THE MORNING AND TWO AT NIGHT )
  2. APIDRA SOLOSTAR [Concomitant]
     Active Substance: INSULIN GLULISINE
     Dosage: 10 IU, 3X/DAY (10 UNITS IN MORNING, 10 UNITS IN NOON AND 10 UNITS IN DINNER)
  3. ASPIRIN. [Concomitant]
     Active Substance: ASPIRIN
     Dosage: 81 MG, 1X/DAY
  4. HYDROCHLOROTH [Concomitant]
     Active Substance: HYDROCHLOROTHIAZIDE
     Dosage: UNK
  5. VIAGRA [Concomitant]
     Active Substance: SILDENAFIL CITRATE
     Dosage: UNK
  6. LIPITOR [Concomitant]
     Active Substance: ATORVASTATIN CALCIUM
     Dosage: 40 MG, 1X/DAY
  7. FUROSEMIDE. [Concomitant]
     Active Substance: FUROSEMIDE
     Indication: POLYURIA
     Dosage: 80 MG, 2X/DAY (40MG TWO IN MORNING AND TWO AT NIGHT)
  8. TAMSULOSIN [Concomitant]
     Active Substance: TAMSULOSIN
     Dosage: 0.8 MG, 1X/DAY (0.4MG TWO AT BED TIME)
  9. ISOSORB MONO [Concomitant]
     Active Substance: ISOSORBIDE MONONITRATE
     Indication: CARDIAC DISORDER
     Dosage: 30 MG, 1X/DAY (ONE AT MORNING)
  10. LEVOTHYROXINE. [Concomitant]
     Active Substance: LEVOTHYROXINE
     Indication: THYROID DISORDER
     Dosage: 125 ?G, 1X/DAY (IN MORNING)
  11. VITAMIN D [Concomitant]
     Active Substance: CHOLECALCIFEROL
     Dosage: 50000 IU, WEEKLY [TAKES ONE ON MONDAY]
  12. CALCITRIOL. [Concomitant]
     Active Substance: CALCITRIOL
     Dosage: 0.25 MG, 1X/DAY
  13. METOPROLOL [Concomitant]
     Active Substance: METOPROLOL
     Indication: BLOOD PRESSURE ABNORMAL
     Dosage: 100 MG, 2X/DAY
  14. LANTUS SOLOSTAR [Concomitant]
     Active Substance: INSULIN GLARGINE
     Dosage: 30 IU, 2X/DAY (30 UNITS AT DAY AND 30 UNITS AT NIGHT)
  15. QUINAPRIL [Concomitant]
     Active Substance: QUINAPRIL\QUINAPRIL HYDROCHLORIDE
     Indication: HYPERTENSION
     Dosage: 10 MG, 1X/DAY (AT NIGHT)
  16. PLAVIX [Concomitant]
     Active Substance: CLOPIDOGREL BISULFATE
     Dosage: 75 MG, 1X/DAY (IN MORNING)
  17. DIVALPROEX EXTENDED RELEASE [Concomitant]
     Indication: HEADACHE
     Dosage: 500 MG, 2X/DAY
  18. BETHANECHOL [Concomitant]
     Active Substance: BETHANECHOL
     Dosage: 10 MG, 3X/DAY

REACTIONS (1)
  - Acute kidney injury [Recovered/Resolved]
